FAERS Safety Report 11411964 (Version 1)
Quarter: 2015Q3

REPORT INFORMATION
  Report Type: Spontaneous
  Country: US (occurrence: US)
  Receive Date: 20150821
  Receipt Date: 20150821
  Transmission Date: 20151125
  Serious: No
  Sender: FDA-Public Use
  Company Number: US-ELI_LILLY_AND_COMPANY-US201201002196

PATIENT
  Age: 77 Year
  Sex: Female

DRUGS (3)
  1. NOVOLIN                            /00806401/ [Concomitant]
     Indication: DIABETES MELLITUS
     Dosage: UNK
     Dates: end: 201110
  2. HUMULIN N [Suspect]
     Active Substance: INSULIN HUMAN
     Indication: DIABETES MELLITUS
     Dosage: 55 U, EACH MORNING
     Dates: start: 201110
  3. HUMULIN N [Suspect]
     Active Substance: INSULIN HUMAN
     Dosage: 20 U, EACH EVENING
     Dates: start: 201110

REACTIONS (8)
  - Fall [Unknown]
  - Fall [Unknown]
  - Back injury [Unknown]
  - Injection site pain [Unknown]
  - Injection site mass [Unknown]
  - Tremor [Unknown]
  - Dyspnoea [Unknown]
  - Limb injury [Unknown]

NARRATIVE: CASE EVENT DATE: 20111218
